FAERS Safety Report 25101599 (Version 1)
Quarter: 2025Q1

REPORT INFORMATION
  Report Type: Report from Study
  Country: US (occurrence: US)
  Receive Date: 20250320
  Receipt Date: 20250320
  Transmission Date: 20250409
  Serious: Yes (Other)
  Sender: ABBVIE
  Company Number: US-ABBVIE-6186341

PATIENT
  Age: 50 Year
  Sex: Female

DRUGS (1)
  1. BOTOX [Suspect]
     Active Substance: ONABOTULINUMTOXINA
     Indication: Migraine with aura
     Route: 030
     Dates: start: 202404, end: 202404

REACTIONS (2)
  - Mammoplasty [Unknown]
  - Breast mass [Unknown]

NARRATIVE: CASE EVENT DATE: 20250316
